FAERS Safety Report 7644267-5 (Version None)
Quarter: 2011Q3

REPORT INFORMATION
  Report Type: 
  Country: None (occurrence: None)
  Receive Date: 20110729
  Receipt Date: 20110722
  Transmission Date: 20111222
  Serious: Yes (Hospitalization, Other)
  Sender: FDA-Public Use
  Company Number: PHEH2010US03372

PATIENT
  Sex: Female

DRUGS (26)
  1. NOVOLIN 70/30 [Concomitant]
  2. HUMULIN R [Concomitant]
  3. SLOW-MAG [Concomitant]
  4. DEXAMETHASONE [Concomitant]
  5. AVALIDE [Concomitant]
  6. MIDRIN [Concomitant]
  7. EFFEXOR [Concomitant]
  8. TOPAMAX [Concomitant]
  9. AVANDIA [Concomitant]
  10. IBUPROFEN [Concomitant]
  11. CRESTOR [Concomitant]
  12. LANTUS [Concomitant]
  13. MILK OF MAGNESIA TAB [Concomitant]
  14. PREVACID [Concomitant]
  15. PHENERGAN [Concomitant]
  16. LEVAQUIN [Concomitant]
  17. MAALOX                                  /USA/ [Concomitant]
  18. ASPIRIN [Concomitant]
  19. HUMALOG [Concomitant]
  20. TYLENOL-500 [Concomitant]
  21. ZELNORM [Suspect]
     Dosage: UNK
     Route: 048
     Dates: start: 20040601
  22. DILAUDID [Concomitant]
  23. FLEXERIL [Concomitant]
  24. ACTOS [Concomitant]
  25. DEPAKOTE [Concomitant]
  26. AVAPRO [Concomitant]

REACTIONS (20)
  - SYNCOPE [None]
  - HYPERHIDROSIS [None]
  - INJURY [None]
  - CHEST PAIN [None]
  - OROPHARYNGEAL PAIN [None]
  - ROAD TRAFFIC ACCIDENT [None]
  - MIGRAINE [None]
  - MUSCLE STRAIN [None]
  - FEELING HOT [None]
  - VIRAL PHARYNGITIS [None]
  - CONVULSION [None]
  - HEADACHE [None]
  - ASTHENIA [None]
  - NAUSEA [None]
  - ABDOMINAL PAIN [None]
  - HYPERGLYCAEMIA [None]
  - SINUSITIS [None]
  - DYSPHAGIA [None]
  - ABDOMINAL PAIN UPPER [None]
  - DIARRHOEA [None]
